FAERS Safety Report 15144443 (Version 1)
Quarter: 2018Q3

REPORT INFORMATION
  Report Type: Spontaneous
  Country: US (occurrence: US)
  Receive Date: 20180713
  Receipt Date: 20180713
  Transmission Date: 20181010
  Serious: No
  Sender: FDA-Public Use
  Company Number: US-NOVOPROD-600503

PATIENT
  Age: 39 Year
  Sex: Male

DRUGS (2)
  1. FIASP [Suspect]
     Active Substance: INSULIN ASPART
     Indication: TYPE 1 DIABETES MELLITUS
     Dosage: 80?100 UNITS A DAY
     Route: 058
     Dates: start: 20180406, end: 2018
  2. FIASP [Suspect]
     Active Substance: INSULIN ASPART
     Dosage: 30 PERCENT MORE INSULIN
     Route: 058
     Dates: start: 2018

REACTIONS (5)
  - Product quality issue [Not Recovered/Not Resolved]
  - Product storage error [Unknown]
  - Diabetes mellitus inadequate control [Not Recovered/Not Resolved]
  - Drug effect delayed [Unknown]
  - Drug effect decreased [Not Recovered/Not Resolved]

NARRATIVE: CASE EVENT DATE: 2018
